FAERS Safety Report 4404468-6 (Version None)
Quarter: 2004Q3

REPORT INFORMATION
  Report Type: 
  Country: None (occurrence: None)
  Receive Date: 20040720
  Receipt Date: 20040713
  Transmission Date: 20050211
  Serious: Yes (Death)
  Sender: FDA-Public Use
  Company Number: S04-USA-02762-01

PATIENT
  Age: 30 Year
  Sex: Female

DRUGS (5)
  1. LEXAPRO (ESCITALOPRAM) [Suspect]
     Indication: DEPRESSION
  2. AMBIEN [Concomitant]
  3. VALIUM [Concomitant]
  4. WELLBUTRIN [Concomitant]
  5. THYROID MEDICATION [Concomitant]

REACTIONS (8)
  - COMPLETED SUICIDE [None]
  - FAMILY STRESS [None]
  - GUN SHOT WOUND [None]
  - INSOMNIA [None]
  - MARITAL PROBLEM [None]
  - MEDICATION ERROR [None]
  - TRAUMATIC BRAIN INJURY [None]
  - TREATMENT NONCOMPLIANCE [None]
